FAERS Safety Report 16817772 (Version 1)
Quarter: 2019Q3

REPORT INFORMATION
  Report Type: Spontaneous
  Country: US (occurrence: US)
  Receive Date: 20190917
  Receipt Date: 20190917
  Transmission Date: 20191005
  Serious: Yes (Hospitalization, Other)
  Sender: FDA-Public Use
  Company Number: US-UNITED THERAPEUTICS-UNT-2019-015452

PATIENT
  Age: 72 Year
  Sex: Female
  Weight: 61.22 kg

DRUGS (1)
  1. TYVASO [Suspect]
     Active Substance: TREPROSTINIL
     Indication: PULMONARY ARTERIAL HYPERTENSION
     Dosage: 60-120 ?G, QID
     Dates: start: 20121212

REACTIONS (4)
  - Fall [Recovered/Resolved with Sequelae]
  - Hip fracture [Unknown]
  - Lower limb fracture [Unknown]
  - Off label use [Unknown]

NARRATIVE: CASE EVENT DATE: 20121212
